FAERS Safety Report 5297752-8 (Version None)
Quarter: 2007Q2

REPORT INFORMATION
  Report Type: 
  Country: None (occurrence: None)
  Receive Date: 20070416
  Receipt Date: 20070403
  Transmission Date: 20071010
  Serious: Yes (Other)
  Sender: FDA-Public Use
  Company Number: US-ELI_LILLY_AND_COMPANY-US200704000540

PATIENT
  Age: 78 Year
  Sex: Female

DRUGS (2)
  1. FORTEO [Suspect]
     Indication: OSTEOPOROSIS
     Dosage: UNK, UNK
     Dates: start: 20051201, end: 20060101
  2. FORTEO [Suspect]
     Dates: start: 20060101

REACTIONS (8)
  - ASTHENIA [None]
  - BODY TEMPERATURE INCREASED [None]
  - CARDIAC VALVE VEGETATION [None]
  - CHILLS [None]
  - ENDOCARDITIS [None]
  - MUSCLE SPASMS [None]
  - PRURITUS GENERALISED [None]
  - PYREXIA [None]
